FAERS Safety Report 10234807 (Version 1)
Quarter: 2014Q2

REPORT INFORMATION
  Report Type: Spontaneous
  Country: GB (occurrence: GB)
  Receive Date: 20140613
  Receipt Date: 20140613
  Transmission Date: 20141212
  Serious: Yes (Disabling)
  Sender: FDA-Public Use
  Company Number: GB-ASTRAZENECA-2014SE39563

PATIENT
  Age: 51 Year
  Sex: Male
  Weight: 78.4 kg

DRUGS (5)
  1. TICAGRELOR [Suspect]
     Indication: ANTIPLATELET THERAPY
     Route: 048
     Dates: start: 20131003, end: 20140505
  2. ASPIRIN [Concomitant]
  3. ATORVASTATIN [Concomitant]
  4. LANSOPRAZOLE [Concomitant]
  5. PERINDOPRIL [Concomitant]

REACTIONS (2)
  - Balance disorder [Recovered/Resolved]
  - Gait disturbance [Recovering/Resolving]
